FAERS Safety Report 5323096-1 (Version None)
Quarter: 2007Q2

REPORT INFORMATION
  Report Type: 
  Country: None (occurrence: None)
  Receive Date: 20070507
  Receipt Date: 20070426
  Transmission Date: 20071010
  Serious: Yes (Hospitalization)
  Sender: FDA-Public Use
  Company Number: 2007RL000115

PATIENT
  Age: 0 Year
  Sex: Male
  Weight: 3.5 kg

DRUGS (3)
  1. PROPAFENONE HCL [Suspect]
     Indication: SUPRAVENTRICULAR EXTRASYSTOLES
     Dosage: 10 MG;TID;PO
     Route: 048
     Dates: start: 20070225
  2. PROPAFENONE HCL [Suspect]
     Indication: VENTRICULAR EXTRASYSTOLES
     Dosage: 10 MG;TID;PO
     Route: 048
     Dates: start: 20070225
  3. DIGOXIN [Concomitant]

REACTIONS (3)
  - ALANINE AMINOTRANSFERASE INCREASED [None]
  - ASPARTATE AMINOTRANSFERASE INCREASED [None]
  - GAMMA-GLUTAMYLTRANSFERASE INCREASED [None]
